FAERS Safety Report 20694364 (Version 2)
Quarter: 2022Q2

REPORT INFORMATION
  Report Type: Spontaneous
  Country: GB (occurrence: GB)
  Receive Date: 20220411
  Receipt Date: 20220425
  Transmission Date: 20220721
  Serious: Yes (Other)
  Sender: FDA-Public Use
  Company Number: GB-TEVA-2022-GB-2025675

PATIENT
  Age: 60 Year
  Sex: Female

DRUGS (1)
  1. PREDNISOLONE [Suspect]
     Active Substance: PREDNISOLONE
     Indication: Myasthenia gravis
     Dosage: EVERY ALTERNATE DAY; ON INCREASING DOSE
     Route: 065

REACTIONS (5)
  - Anaemia [Unknown]
  - Steroid diabetes [Unknown]
  - Gastritis [Unknown]
  - Obesity [Unknown]
  - Diabetes mellitus [Unknown]
